FAERS Safety Report 4425447-9 (Version None)
Quarter: 2004Q3

REPORT INFORMATION
  Report Type: 
  Country: None (occurrence: None)
  Receive Date: 20040813
  Receipt Date: 20040726
  Transmission Date: 20050211
  Serious: Yes (Death)
  Sender: FDA-Public Use
  Company Number: AU-ROCHE-375273

PATIENT
  Age: 57 Year
  Sex: Female
  Weight: 78 kg

DRUGS (2)
  1. PEGASYS [Suspect]
     Indication: HEPATITIS C
     Route: 058
     Dates: start: 20040130, end: 20040720
  2. RIBAVIRIN [Concomitant]
     Route: 048
     Dates: start: 20040130, end: 20040720

REACTIONS (1)
  - SUBARACHNOID HAEMORRHAGE [None]
